FAERS Safety Report 15482777 (Version 1)
Quarter: 2018Q4

REPORT INFORMATION
  Report Type: Spontaneous
  Country: GB (occurrence: GB)
  Receive Date: 20181010
  Receipt Date: 20181010
  Transmission Date: 20190205
  Serious: Yes (Other)
  Sender: FDA-Public Use
  Company Number: GB-TEVA-2018-GB-962605

PATIENT
  Age: 51 Year
  Sex: Male
  Weight: 99 kg

DRUGS (3)
  1. CITALOPRAM [Concomitant]
     Active Substance: CITALOPRAM HYDROBROMIDE
     Dosage: 1 DOSAGE FORMS DAILY;
     Dates: start: 20180130
  2. NAPROXEN. [Suspect]
     Active Substance: NAPROXEN
     Dates: start: 20180814
  3. LANSOPRAZOLE. [Concomitant]
     Active Substance: LANSOPRAZOLE
     Dosage: 1 DOSAGE FORMS DAILY;
     Dates: start: 20180814, end: 20180911

REACTIONS (4)
  - Abdominal discomfort [Unknown]
  - Malaise [Unknown]
  - Vomiting [Recovering/Resolving]
  - Nausea [Recovering/Resolving]

NARRATIVE: CASE EVENT DATE: 20180910
